FAERS Safety Report 5171567-3 (Version None)
Quarter: 2006Q4

REPORT INFORMATION
  Report Type: 
  Country: None (occurrence: None)
  Receive Date: 20061213
  Receipt Date: 20060724
  Transmission Date: 20070319
  Serious: Yes (Other)
  Sender: FDA-Public Use
  Company Number: US-AMGEN-US187693

PATIENT
  Sex: Male
  Weight: 140.7 kg

DRUGS (9)
  1. ENBREL [Suspect]
     Indication: PSORIATIC ARTHROPATHY
     Route: 058
     Dates: start: 20011011, end: 20060418
  2. LIPITOR [Concomitant]
     Dates: start: 20010801
  3. AMARYL [Concomitant]
     Dates: start: 20030601
  4. CELEBREX [Concomitant]
     Dates: start: 20010801
  5. COZAAR [Concomitant]
     Dates: start: 20050901
  6. ACTOS [Concomitant]
     Dates: start: 20050901
  7. ASPIRIN [Concomitant]
     Dates: start: 20050901
  8. GLUCOSAMINE [Concomitant]
  9. CENTRUM [Concomitant]
     Dates: start: 20050901

REACTIONS (3)
  - CHRONIC LYMPHOCYTIC LEUKAEMIA [None]
  - CONSTIPATION [None]
  - DIARRHOEA [None]
